FAERS Safety Report 14412047 (Version 1)
Quarter: 2018Q1

REPORT INFORMATION
  Report Type: Spontaneous
  Country: US (occurrence: US)
  Receive Date: 20180117
  Receipt Date: 20180117
  Transmission Date: 20180509
  Serious: Yes (Hospitalization)
  Sender: FDA-Public Use
  Company Number: None

PATIENT
  Age: 64 Year
  Sex: Female

DRUGS (33)
  1. NORCO [Concomitant]
     Active Substance: ACETAMINOPHEN\HYDROCODONE BITARTRATE
  2. RESVERAROL [Concomitant]
  3. TRAMADOL HCL [Concomitant]
     Active Substance: TRAMADOL HYDROCHLORIDE
  4. WAL-ZYR (CETIRIZINE HYDROCHLORIDE) [Concomitant]
     Active Substance: CETIRIZINE HYDROCHLORIDE
  5. XELJANZ [Suspect]
     Active Substance: TOFACITINIB CITRATE
     Indication: RHEUMATOID ARTHRITIS
     Route: 048
     Dates: start: 20170509
  6. CAL CIT-D3 [Concomitant]
  7. GAVISCON [Concomitant]
     Active Substance: ALUMINUM HYDROXIDE\MAGNESIUM CARBONATE
  8. HYDROXYCHLOR [Concomitant]
     Active Substance: HYDROXYCHLOROQUINE
  9. LIALDA [Concomitant]
     Active Substance: MESALAMINE
  10. PHAZYME CHEW [Concomitant]
  11. TURMERIC [Concomitant]
     Active Substance: HERBALS\TURMERIC
  12. PANOPRAZOLE [Concomitant]
  13. RALOXIFENE. [Concomitant]
     Active Substance: RALOXIFENE
  14. SELENIUM [Concomitant]
     Active Substance: SELENIUM
  15. SINGULAIR [Concomitant]
     Active Substance: MONTELUKAST SODIUM
  16. TUDORZA PRES AER [Concomitant]
  17. CYCLOBENZAPR [Concomitant]
     Active Substance: CYCLOBENZAPRINE
  18. EPIPEN [Concomitant]
     Active Substance: EPINEPHRINE
  19. FINACEA [Concomitant]
     Active Substance: AZELAIC ACID
  20. PLAVIX [Concomitant]
     Active Substance: CLOPIDOGREL BISULFATE
  21. FISH OIL [Concomitant]
     Active Substance: FISH OIL
  22. MULTIVITAMIN [Concomitant]
     Active Substance: VITAMINS
  23. PROVENTIL HFA [Concomitant]
     Active Substance: ALBUTEROL SULFATE
  24. SUCRALFATE. [Concomitant]
     Active Substance: SUCRALFATE
  25. DICLOFENAC [Concomitant]
     Active Substance: DICLOFENAC
  26. GUAIFENESIN SOL [Concomitant]
  27. MONTELUKAST [Concomitant]
     Active Substance: MONTELUKAST SODIUM
  28. PSE [Concomitant]
  29. BRUSH VIT C LOE [Concomitant]
  30. ESTRACE [Concomitant]
     Active Substance: ESTRADIOL
  31. EVISTA [Concomitant]
     Active Substance: RALOXIFENE HYDROCHLORIDE
  32. FLUTICASONE. [Concomitant]
     Active Substance: FLUTICASONE
  33. VENTOLIN HFA AER [Concomitant]

REACTIONS (1)
  - Procedural pain [None]
